FAERS Safety Report 6527535-X (Version None)
Quarter: 2010Q1

REPORT INFORMATION
  Report Type: 
  Country: None (occurrence: None)
  Receive Date: 20100104
  Receipt Date: 20100104
  Transmission Date: 20100710
  Serious: Yes (Death, Hospitalization, Disabling, Other)
  Sender: FDA-Public Use
  Company Number: None

PATIENT
  Age: 83 Year
  Sex: Female
  Weight: 136.0791 kg

DRUGS (1)
  1. TYLENOL [Suspect]
     Indication: ARTHRALGIA
     Dosage: 4 TWICE PO
     Route: 048
     Dates: start: 20091018, end: 20091018

REACTIONS (10)
  - ABDOMINAL PAIN UPPER [None]
  - CARDIAC ARREST [None]
  - DIALYSIS [None]
  - EPISTAXIS [None]
  - EYE ROLLING [None]
  - HAEMORRHAGE [None]
  - MOUTH HAEMORRHAGE [None]
  - ORGAN FAILURE [None]
  - PRODUCT QUALITY ISSUE [None]
  - SURGERY [None]
